FAERS Safety Report 5915724-4 (Version None)
Quarter: 2008Q4

REPORT INFORMATION
  Report Type: 
  Country: None (occurrence: None)
  Receive Date: 20081010
  Receipt Date: 20081002
  Transmission Date: 20090506
  Serious: Yes (Other)
  Sender: FDA-Public Use
  Company Number: GB-ASTRAZENECA-2008GB01870

PATIENT
  Age: 61 Year
  Sex: Female

DRUGS (5)
  1. QUETIAPINE FUMARATE [Suspect]
     Route: 048
  2. MELATONIN [Concomitant]
     Dosage: 10 MG
  3. ANASTROZOLE [Concomitant]
     Indication: BREAST CANCER
  4. HALOPERIDOL [Concomitant]
     Dates: end: 20080801
  5. LACTULOSE [Concomitant]

REACTIONS (1)
  - TRANSIENT ISCHAEMIC ATTACK [None]
